FAERS Safety Report 14975281 (Version 1)
Quarter: 2018Q2

REPORT INFORMATION
  Report Type: Report from Study
  Country: IT (occurrence: IT)
  Receive Date: 20180605
  Receipt Date: 20180605
  Transmission Date: 20180711
  Serious: Yes (Hospitalization)
  Sender: FDA-Public Use
  Company Number: IT-MYLANLABS-2018M1038368

PATIENT
  Age: 65 Year
  Sex: Female

DRUGS (3)
  1. INFLUENZA VACCINE INACT [Suspect]
     Active Substance: INFLUENZA VIRUS VACCINE
     Indication: IMMUNISATION
     Route: 065
  2. SIMVASTATIN. [Suspect]
     Active Substance: SIMVASTATIN
     Indication: PRODUCT USED FOR UNKNOWN INDICATION
     Route: 065
  3. VARIVAX [Interacting]
     Active Substance: VARICELLA-ZOSTER VIRUS STRAIN OKA/MERCK LIVE ANTIGEN
     Indication: IMMUNISATION
     Route: 065

REACTIONS (10)
  - Areflexia [Unknown]
  - Drug interaction [Unknown]
  - General physical health deterioration [Unknown]
  - Myopathy [Unknown]
  - Pleocytosis [Unknown]
  - Rhabdomyolysis [Unknown]
  - Hyperaesthesia [Unknown]
  - Pain in extremity [Unknown]
  - Paraesthesia [Unknown]
  - Sensory loss [Unknown]
